FAERS Safety Report 6371509-9 (Version None)
Quarter: 2009Q3

REPORT INFORMATION
  Report Type: 
  Country: None (occurrence: None)
  Receive Date: 20090923
  Receipt Date: 20071008
  Transmission Date: 20100115
  Serious: No
  Sender: FDA-Public Use
  Company Number: US-ASTRAZENECA-2007UW18761

PATIENT
  Age: 10944 Day
  Sex: Male
  Weight: 151 kg

DRUGS (21)
  1. SEROQUEL [Suspect]
     Dosage: 25 - 150 MG
     Route: 048
     Dates: start: 20020910
  2. SEROQUEL [Suspect]
     Route: 048
     Dates: start: 20030807
  3. LEXAPRO [Concomitant]
     Route: 065
  4. CYMBALTA [Concomitant]
     Indication: BIPOLAR DISORDER
     Dosage: 30 - 60 MG
     Route: 048
  5. KLONOPIN [Concomitant]
     Indication: ANXIETY
     Dosage: 0.5 - 2.4 MG
     Route: 048
  6. NITROGLYCERIN [Concomitant]
     Indication: CARDIAC DISORDER
     Route: 048
  7. TOPROL-XL [Concomitant]
     Indication: BLOOD CHOLESTEROL
     Dosage: 50 - 200 MG
     Route: 048
  8. LIPITOR [Concomitant]
     Indication: HYPERLIPIDAEMIA
     Dosage: 10 - 20 MG
     Route: 048
  9. AMARYL [Concomitant]
     Indication: DIABETES MELLITUS
     Dosage: 2 - 4 MG
     Route: 048
  10. LASIX [Concomitant]
     Route: 048
  11. SOMA [Concomitant]
     Indication: BACK PAIN
     Dosage: 350 - 1050 MG
     Route: 048
  12. SOMA [Concomitant]
     Indication: MUSCLE RELAXANT THERAPY
     Dosage: 350 - 1050 MG
     Route: 048
  13. CENTRUM [Concomitant]
     Route: 065
  14. COLACE [Concomitant]
     Route: 065
  15. AVAPRO [Concomitant]
     Indication: HYPERTENSION
     Dosage: 150 - 300 MG
     Route: 048
  16. PRAVACHOL [Concomitant]
     Route: 048
  17. GLUCOVANCE [Concomitant]
     Indication: DIABETES MELLITUS
     Dosage: 2.5 / 500 MG TWO TIMES A DAY
     Route: 048
  18. WELLBUTRIN [Concomitant]
     Indication: NERVOUS SYSTEM DISORDER
     Dosage: 150 - 300 MG
     Route: 048
  19. PAXIL [Concomitant]
     Route: 048
  20. PROTONIX [Concomitant]
     Indication: GASTROOESOPHAGEAL REFLUX DISEASE
     Route: 048
  21. LORTAB [Concomitant]
     Indication: PAIN
     Dosage: 10 - 20 MG
     Route: 048

REACTIONS (19)
  - ABDOMINAL PAIN [None]
  - ALCOHOLISM [None]
  - ARTHROPATHY [None]
  - BACK PAIN [None]
  - CARPAL TUNNEL SYNDROME [None]
  - CONDUCTIVE DEAFNESS [None]
  - DERMAL CYST [None]
  - DIABETES MELLITUS [None]
  - EUSTACHIAN TUBE DISORDER [None]
  - FOLLICULITIS [None]
  - GASTROENTERITIS [None]
  - HEPATIC STEATOSIS [None]
  - MUSCLE SPASMS [None]
  - NON-CARDIAC CHEST PAIN [None]
  - OTITIS MEDIA [None]
  - RHINITIS ALLERGIC [None]
  - UPPER RESPIRATORY TRACT INFECTION [None]
  - VISION BLURRED [None]
  - WEIGHT DECREASED [None]
